FAERS Safety Report 6920180-3 (Version None)
Quarter: 2010Q3

REPORT INFORMATION
  Report Type: 
  Country: None (occurrence: None)
  Receive Date: 20100809
  Receipt Date: 20100722
  Transmission Date: 20110219
  Serious: Yes (Hospitalization)
  Sender: FDA-Public Use
  Company Number: B0666585A

PATIENT
  Age: 50 Year
  Sex: Male

DRUGS (12)
  1. PREDNISOLONE [Suspect]
     Indication: PLASMABLASTIC LYMPHOMA
  2. VINCRISTINE [Suspect]
     Indication: PLASMABLASTIC LYMPHOMA
     Dosage: CYCLIC
  3. DOXORUBICIN HCL [Suspect]
     Indication: PLASMABLASTIC LYMPHOMA
     Dosage: CYCLIC
  4. CYCLOPHOSPHAMIDE [Suspect]
     Indication: PLASMABLASTIC LYMPHOMA
     Dosage: CYCLIC
  5. FLUCONAZOLE [Suspect]
     Indication: PROPHYLAXIS
     Dosage: 50 MG / PER DAY
  6. ACYCLOVIR (FORMULATION UNKNOWN) (GENERIC) (FLUCONAZOLE) [Suspect]
     Indication: PROPHYLAXIS
     Dosage: 400 MG / TWICE PER DAY
  7. AZITHROMYCIN (FORMULATION UNKNOWN) (GENERIC) (AZITHROMYCIN) [Suspect]
     Indication: PROPHYLAXIS
     Dosage: 1250 MG / WEEKLY
  8. TENOFOVIR DISOPROXIL FUMA (FORMULATION UNKNOWN) (GENERIC) (TENOFOVIR D [Suspect]
     Indication: HIV INFECTION
  9. EMTRICITABINE (FORMULATION UNKNOWN) (GENERIC) (EMTRICITABINE) [Suspect]
     Indication: HIV INFECTION
  10. DARUNAVIR (FORMULATION UNKNOWN) (GENERIC) (DARUNAVIR) [Suspect]
     Indication: HIV INFECTION
  11. RITONAVIR (FORMULATION UNKNOWN) (GENERIC) (RITONAVIR) [Suspect]
     Indication: HIV INFECTION
  12. COTRIM [Concomitant]

REACTIONS (11)
  - ATAXIA [None]
  - BALANCE DISORDER [None]
  - COUGH [None]
  - CYTOMEGALOVIRUS INFECTION [None]
  - CYTOMEGALOVIRUS MYELOMENINGORADICULITIS [None]
  - DIARRHOEA [None]
  - HAEMOGLOBIN DECREASED [None]
  - NEUTROPENIC SEPSIS [None]
  - PYREXIA [None]
  - SKIN LESION [None]
  - VITREOUS FLOATERS [None]
